FAERS Safety Report 14683295 (Version 1)
Quarter: 2018Q1

REPORT INFORMATION
  Report Type: Spontaneous
  Country: FR (occurrence: FR)
  Receive Date: 20180327
  Receipt Date: 20180327
  Transmission Date: 20180509
  Serious: Yes (Hospitalization, Other)
  Sender: FDA-Public Use
  Company Number: FR-MERCK KGAA-2044586

PATIENT
  Age: 37 Year
  Sex: Female

DRUGS (2)
  1. NOVOTHYROX [Suspect]
     Active Substance: LEVOTHYROXINE SODIUM
     Indication: PRODUCT USED FOR UNKNOWN INDICATION
     Dates: end: 2017
  2. NOVOTHYROX [Suspect]
     Active Substance: LEVOTHYROXINE SODIUM

REACTIONS (22)
  - Loss of personal independence in daily activities [None]
  - Mental fatigue [None]
  - Impaired driving ability [None]
  - Social avoidant behaviour [None]
  - Chest discomfort [None]
  - Hot flush [None]
  - Anxiety [None]
  - Decreased interest [None]
  - Depressed mood [None]
  - Nervousness [None]
  - Dyspnoea [None]
  - Pain [None]
  - Anger [None]
  - Serum ferritin decreased [None]
  - Personal relationship issue [None]
  - Blood thyroid stimulating hormone decreased [None]
  - Syncope [None]
  - Fatigue [None]
  - Alopecia [None]
  - Asthenia [None]
  - Blood thyroid stimulating hormone increased [None]
  - Tachycardia [None]

NARRATIVE: CASE EVENT DATE: 2017
